FAERS Safety Report 20742133 (Version 1)
Quarter: 2022Q2

REPORT INFORMATION
  Report Type: Spontaneous
  Country: ES (occurrence: ES)
  Receive Date: 20220423
  Receipt Date: 20220423
  Transmission Date: 20220721
  Serious: Yes (Death, Life-Threatening, Hospitalization, Other)
  Sender: FDA-Public Use
  Company Number: ES-CELGENE-ESP-20201200019

PATIENT
  Age: 70 Year
  Sex: Male
  Weight: 68.50 kg

DRUGS (41)
  1. AZACITIDINE [Suspect]
     Active Substance: AZACITIDINE
     Indication: Acute myeloid leukaemia
  2. AZACITIDINE [Suspect]
     Active Substance: AZACITIDINE
     Route: 058
     Dates: start: 20191126
  3. PEVONEDISTAT [Suspect]
     Active Substance: PEVONEDISTAT
     Indication: Acute myeloid leukaemia
     Dosage: 20 MILLIGRAM/SQ. METER
     Route: 042
     Dates: start: 20191122
  4. PEVONEDISTAT [Suspect]
     Active Substance: PEVONEDISTAT
     Dosage: METER
     Dates: start: 20191128
  5. PEVONEDISTAT [Suspect]
     Active Substance: PEVONEDISTAT
     Dosage: #2
     Dates: start: 20191130
  6. PEVONEDISTAT [Suspect]
     Active Substance: PEVONEDISTAT
     Dosage: 35.2 MILLIGRAM/SQ. METER
     Dates: start: 20191226
  7. PEVONEDISTAT [Suspect]
     Active Substance: PEVONEDISTAT
     Dosage: #3
  8. PEVONEDISTAT [Suspect]
     Active Substance: PEVONEDISTAT
     Dosage: #4
  9. PEVONEDISTAT [Suspect]
     Active Substance: PEVONEDISTAT
     Dosage: #2
     Route: 042
     Dates: start: 20191129, end: 20191129
  10. PEVONEDISTAT [Suspect]
     Active Substance: PEVONEDISTAT
     Dosage: #3
     Route: 042
     Dates: start: 20191130, end: 20191130
  11. PEVONEDISTAT [Suspect]
     Active Substance: PEVONEDISTAT
     Route: 042
     Dates: end: 20191226
  12. PEVONEDISTAT [Suspect]
     Active Substance: PEVONEDISTAT
     Indication: Acute myeloid leukaemia
     Dosage: FREQUENCY TEXT: NOT PROVIDED
     Route: 042
     Dates: start: 20191122
  13. PEVONEDISTAT [Suspect]
     Active Substance: PEVONEDISTAT
     Dosage: FREQUENCY TEXT: NOT PROVIDED
     Route: 042
     Dates: start: 20191128, end: 20191128
  14. PEVONEDISTAT [Suspect]
     Active Substance: PEVONEDISTAT
     Dosage: FREQUENCY TEXT: NOT PROVIDED
     Route: 042
     Dates: start: 20191130, end: 20191130
  15. PEVONEDISTAT [Suspect]
     Active Substance: PEVONEDISTAT
     Dosage: FREQUENCY TEXT: NOT PROVIDED
     Route: 042
     Dates: start: 20191226
  16. FUROSEMIDE [Concomitant]
     Active Substance: FUROSEMIDE
     Dates: start: 20091118
  17. ALLOPURINOL [Concomitant]
     Active Substance: ALLOPURINOL
     Dates: start: 20191119
  18. HYDROXYUREA [Concomitant]
     Active Substance: HYDROXYUREA
     Indication: Product used for unknown indication
     Dates: start: 20191119
  19. CEFTAZIDIME [Concomitant]
     Active Substance: CEFTAZIDIME
     Dates: start: 20091124
  20. GRANISETRON [Concomitant]
     Active Substance: GRANISETRON
     Dates: start: 20191126
  21. POTASSIUM [Concomitant]
     Active Substance: POTASSIUM
     Dates: start: 20191126
  22. PIPERACILLIN SODIUM\TAZOBACTAM SODIUM [Concomitant]
     Active Substance: PIPERACILLIN SODIUM\TAZOBACTAM SODIUM
     Dates: start: 20191211
  23. LEVOFLOXACIN [Concomitant]
     Active Substance: LEVOFLOXACIN
     Dates: start: 20191211
  24. METAMIZOL [Concomitant]
     Active Substance: METAMIZOLE SODIUM
     Indication: Product used for unknown indication
     Dates: start: 20191211
  25. MOVICOL [Concomitant]
     Active Substance: POLYETHYLENE GLYCOL 3350\POTASSIUM CHLORIDE\SODIUM BICARBONATE\SODIUM CHLORIDE
     Indication: Product used for unknown indication
     Dates: start: 20191211
  26. SODIUM CHLORIDE [Concomitant]
     Active Substance: SODIUM CHLORIDE
     Dates: start: 20191211
  27. SODIUM CHLORIDE [Concomitant]
     Active Substance: SODIUM CHLORIDE
     Dates: start: 20191213
  28. CHLORHEXIDINE [Concomitant]
     Active Substance: CHLORHEXIDINE
     Route: 065
     Dates: start: 20191118, end: 20200111
  29. CHLORHEXIDINE [Concomitant]
     Active Substance: CHLORHEXIDINE
     Indication: Product used for unknown indication
  30. NYSTATIN [Concomitant]
     Active Substance: NYSTATIN
     Indication: Product used for unknown indication
     Dates: start: 20191118
  31. ISAVUCONAZOLE [Concomitant]
     Active Substance: ISAVUCONAZOLE
     Route: 065
     Dates: start: 20191118, end: 20200111
  32. ISAVUCONAZOLE [Concomitant]
     Active Substance: ISAVUCONAZOLE
     Indication: Product used for unknown indication
  33. TIOTROPIUM [Concomitant]
     Active Substance: TIOTROPIUM
     Route: 065
     Dates: start: 20191118, end: 20200112
  34. TIOTROPIUM [Concomitant]
     Active Substance: TIOTROPIUM
     Indication: Product used for unknown indication
  35. FLUTICASONE [Concomitant]
     Active Substance: FLUTICASONE
     Route: 065
     Dates: start: 20190716, end: 20200112
  36. FLUTICASONE [Concomitant]
     Active Substance: FLUTICASONE
     Indication: Product used for unknown indication
  37. NYSTATIN [Concomitant]
     Active Substance: NYSTATIN
     Indication: Product used for unknown indication
     Route: 065
     Dates: start: 20191118, end: 20200111
  38. OMEPRAZOLE [Concomitant]
     Active Substance: OMEPRAZOLE
     Indication: Product used for unknown indication
     Route: 065
     Dates: start: 20191118, end: 20200110
  39. CHLORHEXIDINE [Concomitant]
     Active Substance: CHLORHEXIDINE
     Indication: Product used for unknown indication
     Route: 065
     Dates: start: 20191118, end: 20200111
  40. ESCITALOPRAM [Concomitant]
     Active Substance: ESCITALOPRAM OXALATE
     Indication: Product used for unknown indication
     Route: 065
     Dates: start: 20191213, end: 20200110
  41. TEICOPLANIN [Concomitant]
     Active Substance: TEICOPLANIN
     Indication: Product used for unknown indication
     Route: 065
     Dates: start: 20191230, end: 20200109

REACTIONS (3)
  - Thyroid gland abscess [Not Recovered/Not Resolved]
  - Pneumonia staphylococcal [Fatal]
  - Pneumonia pseudomonal [Not Recovered/Not Resolved]

NARRATIVE: CASE EVENT DATE: 20191211
